FAERS Safety Report 15492832 (Version 2)
Quarter: 2018Q4

REPORT INFORMATION
  Report Type: Spontaneous
  Country: PL (occurrence: PL)
  Receive Date: 20181012
  Receipt Date: 20181120
  Transmission Date: 20190205
  Serious: Yes (Death, Other)
  Sender: FDA-Public Use
  Company Number: PL-B.I. PHARMACEUTICALS,INC./RIDGEFIELD-2018-BI-049889

PATIENT
  Age: 52 Year
  Sex: Male

DRUGS (2)
  1. ZOLEDRONIC ACID [Concomitant]
     Active Substance: ZOLEDRONIC ACID
     Indication: PRODUCT USED FOR UNKNOWN INDICATION
     Dosage: FIRST DOSE ON 18 MAY 2017, SECOND ON 18 JUNE?2017.
     Route: 065
     Dates: start: 20170518
  2. GILOTRIF [Suspect]
     Active Substance: AFATINIB
     Indication: NON-SMALL CELL LUNG CANCER
     Route: 065
     Dates: start: 20170626, end: 20180514

REACTIONS (3)
  - Pneumonia [Recovered/Resolved]
  - Death [Fatal]
  - Skin toxicity [Unknown]

NARRATIVE: CASE EVENT DATE: 20180514
